FAERS Safety Report 5389053-4 (Version None)
Quarter: 2007Q3

REPORT INFORMATION
  Report Type: 
  Country: None (occurrence: None)
  Receive Date: 20070717
  Receipt Date: 20070712
  Transmission Date: 20080115
  Serious: Yes (Death, Hospitalization, Other)
  Sender: FDA-Public Use
  Company Number: CN-BAYER-200713896GDS

PATIENT
  Age: 75 Year
  Sex: Female

DRUGS (14)
  1. ASPIRIN [Interacting]
     Indication: CORONARY ARTERY DISEASE
     Dosage: TOTAL DAILY DOSE: 225 MG  UNIT DOSE: 75 MG
     Route: 048
     Dates: start: 20051111, end: 20051116
  2. CEFOPERAZONE SODIUM [Interacting]
     Indication: LUNG INFECTION
     Dosage: TOTAL DAILY DOSE: 6 G
     Route: 042
     Dates: start: 20051101, end: 20051101
  3. METHYLPREDNISOLONE [Interacting]
     Indication: BRONCHOSPASM
     Dosage: TOTAL DAILY DOSE: 160 MG
     Route: 042
     Dates: start: 20051101
  4. SODIUM NITROPRUSSIDE [Interacting]
     Indication: VASODILATATION
     Dosage: TOTAL DAILY DOSE: 75 MG
     Route: 042
     Dates: start: 20051101, end: 20051101
  5. THROMBIN FREEZE-DRIED POWDER [Suspect]
     Indication: THROMBOCYTOPENIA
     Route: 048
     Dates: start: 20051101, end: 20051101
  6. THROMBIN FREEZE-DRIED POWDER [Suspect]
     Dosage: TOTAL DAILY DOSE: 1200 U
     Route: 048
     Dates: start: 20051101, end: 20051101
  7. BUMETANIDE [Concomitant]
     Indication: POLYURIA
     Dosage: TOTAL DAILY DOSE: 3 MG
     Route: 042
     Dates: start: 20051101
  8. SPIRONOLACTONE [Concomitant]
     Indication: POLYURIA
     Dosage: TOTAL DAILY DOSE: 40 MG
     Route: 042
     Dates: start: 20051101
  9. ISOSORBIDE MONONITRATE [Concomitant]
     Indication: VASODILATATION
     Dosage: TOTAL DAILY DOSE: 40 MG
     Route: 042
     Dates: start: 20051101
  10. GLYCERYL TRINITRATE [Concomitant]
     Indication: VASODILATATION
     Dosage: TOTAL DAILY DOSE: 10 MG
     Route: 042
     Dates: start: 20051101
  11. CEFEPIME [Concomitant]
     Indication: LUNG INFECTION
     Dosage: TOTAL DAILY DOSE: 4 G
     Route: 042
     Dates: start: 20051101
  12. DIPROPHYLLINE [Concomitant]
     Indication: BRONCHOSPASM
     Dosage: TOTAL DAILY DOSE: 0.25 MG
     Route: 042
     Dates: start: 20051101
  13. DOPAMINE HCL [Concomitant]
     Indication: CARDIAC FAILURE
     Route: 042
     Dates: start: 20051112
  14. DOBUTAMINE HCL [Concomitant]
     Indication: CARDIAC FAILURE
     Route: 042
     Dates: start: 20051112

REACTIONS (7)
  - APHASIA [None]
  - CEREBRAL INFARCTION [None]
  - CONFUSIONAL STATE [None]
  - GASTROINTESTINAL HAEMORRHAGE [None]
  - LOSS OF CONSCIOUSNESS [None]
  - MELAENA [None]
  - PLATELET COUNT DECREASED [None]
